FAERS Safety Report 21010228 (Version 1)
Quarter: 2022Q2

REPORT INFORMATION
  Report Type: Report from Study
  Country: ES (occurrence: ES)
  Receive Date: 20220627
  Receipt Date: 20220627
  Transmission Date: 20220721
  Serious: Yes (Death)
  Sender: FDA-Public Use
  Company Number: None

PATIENT
  Age: 4 Month
  Sex: Female

DRUGS (1)
  1. SIROLIMUS [Suspect]
     Active Substance: SIROLIMUS
     Indication: Idiopathic pneumonia syndrome
     Dosage: 0.08 MG, 2X/DAY (EVERY 12 HOURS)
     Route: 048
     Dates: start: 20220411, end: 20220522

REACTIONS (3)
  - Acute kidney injury [Fatal]
  - Sepsis [Fatal]
  - Acute hepatic failure [Fatal]

NARRATIVE: CASE EVENT DATE: 20220523
